FAERS Safety Report 10369475 (Version 1)
Quarter: 2014Q1

REPORT INFORMATION
  Report Type: Spontaneous
  Country: US (occurrence: None)
  Receive Date: 20140306
  Receipt Date: 20140306
  Transmission Date: 20141002
  Serious: Yes (Hospitalization)
  Sender: FDA-Public Use
  Company Number: 163-21880-13091015

PATIENT
  Age: 55 Year
  Sex: Male

DRUGS (10)
  1. REVLIMID (LENALIDOMIDE) (25 MILLIGRAM, CAPSULES) [Suspect]
     Indication: PLASMA CELL MYELOMA
     Route: 048
     Dates: start: 200910
  2. MS CONTIN (MORPHINE SULFATE) (UNKNOWN) [Concomitant]
  3. AMLODIPINE BESYLATE (AMLODIPINE BESILATE) (UNKNOWN) [Concomitant]
  4. DEXAMETHASONE (UNKNOWN) [Concomitant]
  5. GABAPENTIN (UNKNOWN) [Concomitant]
  6. ASPIRIN (ACETYLSALICYLIC ACID) (TABLETS) [Concomitant]
  7. NEXIUM (ESOMEPRAZOLE) (CAPSULES) [Concomitant]
  8. AMITRIPTYLINE HCL (AMITRIPTYLINE HYDROCHLORIDE) (UNKNOWN) [Concomitant]
  9. ZINC SULFATE (INJECTION) [Concomitant]
  10. MULTIVITAMINS (CAPSULES) [Concomitant]

REACTIONS (2)
  - Pneumonia [None]
  - White blood cell count decreased [None]
